FAERS Safety Report 9060345 (Version 2)
Quarter: 2013Q2

REPORT INFORMATION
  Report Type: Other
  Country: NO (occurrence: NO)
  Receive Date: 20130212
  Receipt Date: 20130425
  Transmission Date: 20140414
  Serious: Yes (Other)
  Sender: FDA-Public Use
  Company Number: NO-NICOBRDEVP-2013-01843

PATIENT
  Sex: Female

DRUGS (2)
  1. LEVETIRACETAM (UNKNOWN) [Suspect]
     Indication: EPILEPSY
     Dosage: UNK, UNKNOWN
     Route: 065
  2. TRILEPTAL [Suspect]
     Indication: EPILEPSY
     Dosage: 900 MG, DAILY
     Route: 065

REACTIONS (2)
  - Abortion spontaneous [Unknown]
  - Maternal exposure during pregnancy [Unknown]
